FAERS Safety Report 19656073 (Version 6)
Quarter: 2023Q2

REPORT INFORMATION
  Report Type: Spontaneous
  Country: GB (occurrence: GB)
  Receive Date: 20210804
  Receipt Date: 20230420
  Transmission Date: 20230722
  Serious: Yes (Hospitalization, Other)
  Sender: FDA-Public Use
  Company Number: GB-SA-SAC20210802001414

PATIENT
  Sex: Male

DRUGS (2)
  1. CEREZYME [Suspect]
     Active Substance: IMIGLUCERASE
     Indication: Gaucher^s disease
     Dosage: 2000 UNITS (5 X 400 UNIT)
     Route: 042
     Dates: start: 2013
  2. CEREZYME [Suspect]
     Active Substance: IMIGLUCERASE
     Dosage: 4000 U, QOW (10X400 UNIT VIALS)
     Route: 042

REACTIONS (4)
  - Catheter site swelling [Unknown]
  - Haematological infection [Unknown]
  - Sepsis [Unknown]
  - COVID-19 [Unknown]

NARRATIVE: CASE EVENT DATE: 20210801
